FAERS Safety Report 6423421-4 (Version None)
Quarter: 2009Q4

REPORT INFORMATION
  Report Type: 
  Country: None (occurrence: None)
  Receive Date: 20091102
  Receipt Date: 20091028
  Transmission Date: 20100525
  Serious: Yes (Other)
  Sender: FDA-Public Use
  Company Number: A0814227A

PATIENT
  Age: 36 Year
  Sex: Female

DRUGS (2)
  1. LAMICTAL [Suspect]
     Dosage: 200MG PER DAY
     Route: 048
  2. KEPPRA [Concomitant]

REACTIONS (1)
  - HYPOMANIA [None]
